FAERS Safety Report 5918603-1 (Version None)
Quarter: 2008Q4

REPORT INFORMATION
  Report Type: 
  Country: None (occurrence: None)
  Receive Date: 20081010
  Receipt Date: 20080929
  Transmission Date: 20090506
  Serious: Yes (Death, Congenital Anomaly)
  Sender: FDA-Public Use
  Company Number: B0539140A

PATIENT

DRUGS (5)
  1. LAMOTRIGINE [Suspect]
     Dosage: 100 MG/ PER DAY/ TRANSPLACENTARY
     Route: 064
  2. ASPIRIN [Suspect]
     Indication: THROMBOCYTHAEMIA
     Dosage: TRANSPLACENTARY
     Route: 064
  3. ACETAZOLAMIDE [Suspect]
     Dosage: 250 MG/ D
  4. CARBAMAZEPINE [Suspect]
     Dosage: 400 MG / D
  5. HEPARIN [Suspect]
     Dosage: D

REACTIONS (6)
  - ANEURYSM RUPTURED [None]
  - CARDIAC ANEURYSM [None]
  - CARDIAC TAMPONADE [None]
  - FOETAL DISORDER [None]
  - INTRA-UTERINE DEATH [None]
  - MATERNAL DRUGS AFFECTING FOETUS [None]
